FAERS Safety Report 14821269 (Version 2)
Quarter: 2018Q2

REPORT INFORMATION
  Report Type: Spontaneous
  Country: US (occurrence: US)
  Receive Date: 20180427
  Receipt Date: 20180503
  Transmission Date: 20180711
  Serious: Yes (Hospitalization)
  Sender: FDA-Public Use
  Company Number: US-PFIZER INC-2018172145

PATIENT
  Age: 86 Year
  Sex: Female

DRUGS (3)
  1. XANAX [Suspect]
     Active Substance: ALPRAZOLAM
     Indication: NERVOUSNESS
  2. XANAX [Suspect]
     Active Substance: ALPRAZOLAM
     Indication: ANXIETY
     Dosage: 0.5 MG, 3X/DAY [TAKES HER PILLS AT 5 IN THE MORNING, 1 PM. AND THEN AT 9 BEFORE BED]
     Route: 048
  3. FIORICET [Concomitant]
     Active Substance: ACETAMINOPHEN\BUTALBITAL\CAFFEINE
     Indication: HEADACHE
     Dosage: UNK

REACTIONS (5)
  - Fall [Recovered/Resolved]
  - Pre-existing condition improved [Unknown]
  - Musculoskeletal disorder [Unknown]
  - Therapeutic response unexpected [Unknown]
  - Vertigo [Unknown]

NARRATIVE: CASE EVENT DATE: 201803
